FAERS Safety Report 17360609 (Version 1)
Quarter: 2020Q1

REPORT INFORMATION
  Report Type: Spontaneous
  Country: US (occurrence: US)
  Receive Date: 20200131
  Receipt Date: 20200131
  Transmission Date: 20200409
  Serious: Yes (Death)
  Sender: FDA-Public Use
  Company Number: None

PATIENT
  Age: 85 Year
  Sex: Male
  Weight: 74.7 kg

DRUGS (3)
  1. ERIVEDGE [Suspect]
     Active Substance: VISMODEGIB
     Indication: BASAL CELL CARCINOMA
     Route: 048
     Dates: start: 20170629, end: 20200107
  2. XARELTO [Concomitant]
     Active Substance: RIVAROXABAN
  3. HYDROXYUREA 500MG [Concomitant]
     Active Substance: HYDROXYUREA

REACTIONS (1)
  - Death [None]

NARRATIVE: CASE EVENT DATE: 20200107
